FAERS Safety Report 5682858-1 (Version None)
Quarter: 2008Q1

REPORT INFORMATION
  Report Type: 
  Country: None (occurrence: None)
  Receive Date: 20080327
  Receipt Date: 20080317
  Transmission Date: 20080703
  Serious: Yes (Hospitalization)
  Sender: FDA-Public Use
  Company Number: B0513172A

PATIENT
  Age: 85 Year
  Sex: Female

DRUGS (6)
  1. AUGMENTIN '125' [Suspect]
     Indication: ODYNOPHAGIA
     Route: 048
     Dates: start: 20071123, end: 20071125
  2. REVLIMID [Suspect]
     Indication: MYELODYSPLASTIC SYNDROME
     Dosage: 1TAB PER DAY
     Route: 065
     Dates: start: 20071017, end: 20071202
  3. CLAMOXYL [Concomitant]
     Route: 065
     Dates: start: 20071117
  4. MONO-TILDIEM [Concomitant]
     Indication: DRUG USE FOR UNKNOWN INDICATION
     Route: 065
  5. NEULASTA [Concomitant]
     Indication: MYELODYSPLASTIC SYNDROME
     Route: 065
     Dates: start: 20071017
  6. PREVISCAN [Concomitant]
     Indication: DEEP VEIN THROMBOSIS
     Route: 065

REACTIONS (8)
  - ANAEMIA [None]
  - BURNING SENSATION [None]
  - OEDEMA [None]
  - PRURITUS [None]
  - PURPURA [None]
  - RASH [None]
  - RASH MACULAR [None]
  - RASH PAPULAR [None]
